FAERS Safety Report 8160240-5 (Version None)
Quarter: 2012Q1

REPORT INFORMATION
  Report Type: 
  Country: None (occurrence: None)
  Receive Date: 20120223
  Receipt Date: 20120220
  Transmission Date: 20120608
  Serious: Yes (Other)
  Sender: FDA-Public Use
  Company Number: JP-PFIZER INC-2012023724

PATIENT
  Age: 64 Year
  Sex: Female

DRUGS (3)
  1. LIPITOR [Suspect]
     Indication: HYPERCHOLESTEROLAEMIA
     Dosage: 10 MG DAILY
     Route: 048
     Dates: start: 20050610, end: 20120126
  2. ASPIRIN [Concomitant]
     Indication: LACUNAR INFARCTION
     Dosage: 100 MG, DAILY
     Dates: start: 20080401
  3. ZOLPIDEM [Concomitant]
     Dosage: ON AN IRREGULAR BASIS AS NEEDED

REACTIONS (4)
  - MYOGLOBIN BLOOD INCREASED [None]
  - BLOOD LACTATE DEHYDROGENASE INCREASED [None]
  - ASPARTATE AMINOTRANSFERASE INCREASED [None]
  - BLOOD CREATINE PHOSPHOKINASE INCREASED [None]
